FAERS Safety Report 14177550 (Version 1)
Quarter: 2017Q4

REPORT INFORMATION
  Report Type: Report from Study
  Country: US (occurrence: US)
  Receive Date: 20171110
  Receipt Date: 20171110
  Transmission Date: 20180321
  Serious: No
  Sender: FDA-Public Use
  Company Number: US-ACADIA PHARMACEUTICALS INC.-ACA-2017-004976

PATIENT
  Sex: Male

DRUGS (2)
  1. NUPLAZID [Suspect]
     Active Substance: PIMAVANSERIN TARTRATE
     Indication: PRODUCT USED FOR UNKNOWN INDICATION
     Dosage: 34 MG, QD
     Route: 048
     Dates: start: 201707
  2. PREDNISONE. [Suspect]
     Active Substance: PREDNISONE
     Indication: BRONCHITIS
     Dosage: UNK
     Route: 065
     Dates: start: 201707, end: 2017

REACTIONS (5)
  - Abnormal sleep-related event [Recovered/Resolved]
  - Hallucination [Not Recovered/Not Resolved]
  - Oedema peripheral [Recovered/Resolved]
  - Drug ineffective [Unknown]
  - Confusional state [Unknown]

NARRATIVE: CASE EVENT DATE: 2017
